FAERS Safety Report 8866153 (Version 1)
Quarter: 2012Q4

REPORT INFORMATION
  Report Type: 
  Country: US (occurrence: US)
  Receive Date: 20121025
  Receipt Date: 20121025
  Transmission Date: 20130627
  Serious: No
  Sender: FDA-Public Use
  Company Number: US-TEVA-366569USA

PATIENT
  Sex: Male
  Weight: 86.26 kg

DRUGS (10)
  1. NUVIGIL [Suspect]
     Indication: SLEEP APNOEA SYNDROME
     Dosage: 150 Milligram Daily;
     Route: 048
     Dates: start: 201207
  2. ALTACE [Concomitant]
     Indication: CARDIAC DISORDER
     Route: 048
  3. COREG [Concomitant]
     Indication: CARDIAC DISORDER
     Dosage: 12.5 Milligram Daily;
     Route: 048
  4. COUMADIN [Concomitant]
     Indication: ANTICOAGULANT THERAPY
     Dosage: 2 Milligram Daily;
     Route: 048
  5. DIGOXIN [Concomitant]
     Dosage: .125 Milligram Daily;
     Route: 048
  6. LASIX [Concomitant]
     Indication: FLUID IMBALANCE
     Dosage: 40 Milligram Daily;
     Route: 048
  7. LIPITOR [Concomitant]
     Indication: BLOOD CHOLESTEROL
     Route: 048
  8. ASPIRIN [Concomitant]
     Indication: CARDIAC DISORDER
     Dosage: 81 Milligram Daily;
     Route: 048
  9. AMBIEN [Concomitant]
     Indication: SLEEP DISORDER
     Route: 048
  10. LUNESTA [Concomitant]
     Indication: SLEEP DISORDER
     Route: 048

REACTIONS (5)
  - Visual impairment [Unknown]
  - Headache [Not Recovered/Not Resolved]
  - Dizziness [Not Recovered/Not Resolved]
  - Neck pain [Not Recovered/Not Resolved]
  - Drug ineffective [Not Recovered/Not Resolved]
